FAERS Safety Report 7120781-6 (Version None)
Quarter: 2010Q4

REPORT INFORMATION
  Report Type: 
  Country: None (occurrence: None)
  Receive Date: 20101117
  Receipt Date: 20101117
  Transmission Date: 20110411
  Serious: No
  Sender: FDA-Public Use
  Company Number: None

PATIENT
  Sex: Female

DRUGS (4)
  1. PROAIR HFA [Suspect]
     Dosage: INHALE TWO PUFFS BY MOUTH EVERY FOUR HOURS AS NEEDED FOR SHORTNESS OF BREATH
     Route: 055
     Dates: start: 20100626
  2. ATROVENT [Concomitant]
  3. PROCARDIA XL [Concomitant]
  4. DETROL [Concomitant]

REACTIONS (1)
  - DEVICE MALFUNCTION [None]
